FAERS Safety Report 8792686 (Version 2)
Quarter: 2015Q2

REPORT INFORMATION
  Report Type: Report from Study
  Country: US (occurrence: US)
  Receive Date: 20120918
  Receipt Date: 20150407
  Transmission Date: 20150821
  Serious: Yes (Death, Hospitalization)
  Sender: FDA-Public Use
  Company Number: US-ROCHE-1128530

PATIENT
  Age: 48 Year
  Sex: Male

DRUGS (27)
  1. KEPPRA [Concomitant]
     Active Substance: LEVETIRACETAM
     Route: 065
  2. CARBOPLATIN. [Concomitant]
     Active Substance: CARBOPLATIN
  3. NYSTATIN. [Concomitant]
     Active Substance: NYSTATIN
     Route: 048
  4. FENTANYL. [Concomitant]
     Active Substance: FENTANYL
     Dosage: EVERY 3 DAYS
     Route: 062
  5. AUGMENTIN [Concomitant]
     Active Substance: AMOXICILLIN\CLAVULANATE POTASSIUM
     Route: 065
  6. TYLENOL [Concomitant]
     Active Substance: ACETAMINOPHEN
  7. OMEPRAZOLE. [Concomitant]
     Active Substance: OMEPRAZOLE
     Route: 065
  8. ANZEMET [Concomitant]
     Active Substance: DOLASETRON MESYLATE
     Route: 042
  9. LEVOTHYROXINE [Concomitant]
     Active Substance: LEVOTHYROXINE
     Route: 065
  10. IMODIUM [Concomitant]
     Active Substance: LOPERAMIDE HYDROCHLORIDE
     Indication: DIARRHOEA
     Dosage: PM
     Route: 065
  11. DECADRON [Concomitant]
     Active Substance: DEXAMETHASONE
     Route: 042
  12. LEVOTHYROXINE [Concomitant]
     Active Substance: LEVOTHYROXINE
     Route: 065
  13. FLUCONAZOLE. [Concomitant]
     Active Substance: FLUCONAZOLE
     Route: 065
  14. NEURONTIN [Concomitant]
     Active Substance: GABAPENTIN
     Dosage: ONCE OR TWICE DAILY
     Route: 065
  15. MYCELEX TROCHES [Concomitant]
     Route: 065
  16. AVASTIN [Suspect]
     Active Substance: BEVACIZUMAB
     Indication: BRAIN NEOPLASM MALIGNANT
     Route: 042
     Dates: start: 20080125
  17. IRINOTECAN [Concomitant]
     Active Substance: IRINOTECAN
     Route: 042
  18. DECADRON [Concomitant]
     Active Substance: DEXAMETHASONE
     Route: 042
  19. NEXIUM [Concomitant]
     Active Substance: ESOMEPRAZOLE MAGNESIUM
     Route: 065
  20. SENOKOT [Concomitant]
     Active Substance: SENNOSIDES
  21. OXYCODONE [Concomitant]
     Active Substance: OXYCODONE
     Indication: PAIN
     Dosage: PRN
     Route: 065
  22. CLINDAMYCIN [Concomitant]
     Active Substance: CLINDAMYCIN\CLINDAMYCIN PHOSPHATE
     Route: 065
  23. LAMICTAL [Concomitant]
     Active Substance: LAMOTRIGINE
     Route: 048
  24. ATROPINE [Concomitant]
     Active Substance: ATROPINE
     Route: 042
  25. VICODIN [Concomitant]
     Active Substance: ACETAMINOPHEN\HYDROCODONE BITARTRATE
     Dosage: PM
     Route: 065
  26. ETOPOSIDE. [Concomitant]
     Active Substance: ETOPOSIDE
     Route: 065
  27. LORAZEPAM. [Concomitant]
     Active Substance: LORAZEPAM
     Route: 065

REACTIONS (50)
  - Death [Fatal]
  - Fungal infection [Unknown]
  - Osteomyelitis [Unknown]
  - Dysgeusia [Unknown]
  - Oesophageal candidiasis [Unknown]
  - Dysphagia [Unknown]
  - Peritumoural oedema [Unknown]
  - Asthenia [Unknown]
  - Toothache [Unknown]
  - VIIth nerve paralysis [Unknown]
  - Oral candidiasis [Recovered/Resolved]
  - Glossodynia [Unknown]
  - Dry mouth [Unknown]
  - Off label use [Unknown]
  - Speech disorder [Unknown]
  - Hemiplegia [Unknown]
  - Partial seizures [Unknown]
  - Vertigo [Unknown]
  - Pain in jaw [Unknown]
  - Dermatitis [Unknown]
  - Tumour necrosis [Unknown]
  - Soft tissue disorder [Unknown]
  - Neurological decompensation [Unknown]
  - Cushingoid [Unknown]
  - Oral pain [Recovering/Resolving]
  - Encephalomalacia [Unknown]
  - Fatigue [Unknown]
  - Mental status changes [Unknown]
  - Disease progression [Unknown]
  - Seizure [Unknown]
  - Loss of consciousness [Unknown]
  - Cough [Unknown]
  - Facial paresis [Unknown]
  - Pyrexia [Unknown]
  - Cerebral ventricle dilatation [Unknown]
  - Glioma [Unknown]
  - Somnolence [Unknown]
  - Tongue coated [Unknown]
  - Tongue ulceration [Unknown]
  - Abscess [Unknown]
  - Tooth infection [Unknown]
  - Sinusitis [Unknown]
  - Pain [Recovered/Resolved]
  - Hemiparesis [Unknown]
  - Oral pain [Unknown]
  - Headache [Unknown]
  - Epigastric discomfort [Recovered/Resolved]
  - Mouth ulceration [Recovered/Resolved]
  - Tenderness [Unknown]
  - Polyp [Unknown]

NARRATIVE: CASE EVENT DATE: 20080627
